FAERS Safety Report 13497879 (Version 2)
Quarter: 2017Q2

REPORT INFORMATION
  Report Type: Spontaneous
  Country: US (occurrence: US)
  Receive Date: 20170428
  Receipt Date: 20170430
  Transmission Date: 20170830
  Serious: Yes (Hospitalization)
  Sender: FDA-Public Use
  Company Number: US-ELI_LILLY_AND_COMPANY-US201704010842

PATIENT
  Age: 61 Year
  Sex: Male

DRUGS (3)
  1. DOXORUBICIN [Suspect]
     Active Substance: DOXORUBICIN
     Indication: SARCOMA
     Dosage: UNK UNK, UNKNOWN
     Route: 042
     Dates: start: 20170420, end: 20170420
  2. LARTRUVO [Suspect]
     Active Substance: OLARATUMAB
     Dosage: UNK UNK, UNKNOWN
     Route: 042
  3. LARTRUVO [Suspect]
     Active Substance: OLARATUMAB
     Indication: SARCOMA
     Dosage: UNK UNK, UNKNOWN
     Route: 042
     Dates: start: 20170420, end: 20170420

REACTIONS (3)
  - Respiratory failure [Unknown]
  - Renal failure [Unknown]
  - Diarrhoea [Unknown]

NARRATIVE: CASE EVENT DATE: 20170421
